FAERS Safety Report 9798791 (Version 3)
Quarter: 2015Q3

REPORT INFORMATION
  Report Type: Spontaneous
  Country: US (occurrence: US)
  Receive Date: 20140106
  Receipt Date: 20150806
  Transmission Date: 20151125
  Serious: No
  Sender: FDA-Public Use
  Company Number: US-GILEAD-2010-0029609

PATIENT
  Age: 62 Year
  Sex: Female

DRUGS (8)
  1. LETAIRIS [Suspect]
     Active Substance: AMBRISENTAN
     Route: 048
     Dates: start: 200809
  2. LASIX [Concomitant]
     Active Substance: FUROSEMIDE
  3. URSODIOL. [Concomitant]
     Active Substance: URSODIOL
  4. LETAIRIS [Suspect]
     Active Substance: AMBRISENTAN
     Indication: PULMONARY ARTERIAL HYPERTENSION
     Route: 048
     Dates: start: 20100219
  5. COUMADIN [Concomitant]
     Active Substance: WARFARIN SODIUM
  6. POTASSIUM [Concomitant]
     Active Substance: POTASSIUM
  7. FLOLAN [Concomitant]
     Active Substance: EPOPROSTENOL SODIUM
  8. REVATIO [Concomitant]
     Active Substance: SILDENAFIL CITRATE

REACTIONS (1)
  - Transaminases increased [Unknown]
